FAERS Safety Report 8791536 (Version 2)
Quarter: 2013Q1

REPORT INFORMATION
  Report Type: Spontaneous
  Country: FR (occurrence: None)
  Receive Date: 20120913
  Receipt Date: 20121205
  Transmission Date: 20140127
  Serious: Yes (Hospitalization)
  Sender: FDA-Public Use
  Company Number: 2012000205

PATIENT
  Age: 84 Year
  Sex: Male

DRUGS (7)
  1. ACEON (PERINDOPRIL ERBUMINE) TABLET [Suspect]
     Route: 048
     Dates: end: 201208
  2. DISTILBENE (DIETHYLSTIBESTROL) [Concomitant]
  3. PLAVIX (CLOPIDOGREL) [Concomitant]
  4. FLUDEX (INDAPAMIDE) [Concomitant]
  5. SERTRALINE (SERTRALINE) (SERTRALINE) [Concomitant]
  6. ZOPICLONE [Concomitant]
  7. AERIUS (DESLORATADINE) [Concomitant]

REACTIONS (4)
  - Respiratory distress [None]
  - Angioedema [None]
  - Pulmonary congestion [None]
  - Face injury [None]
